FAERS Safety Report 5219815-5 (Version None)
Quarter: 2007Q1

REPORT INFORMATION
  Report Type: 
  Country: None (occurrence: None)
  Receive Date: 20070125
  Receipt Date: 20070117
  Transmission Date: 20070707
  Serious: Yes (Hospitalization)
  Sender: FDA-Public Use
  Company Number: FR-BOEHRINGER INGELHEIM PHARMACEUTICALS, INC.-2007-BP-00506YA

PATIENT
  Sex: Male
  Weight: 92 kg

DRUGS (8)
  1. OMIX L.P. [Suspect]
     Route: 048
     Dates: start: 20060801
  2. DEHYDROEPIANDROSTERONE [Suspect]
     Route: 048
     Dates: start: 20030101
  3. ALDACTACINE [Concomitant]
  4. OMEPRAZOLE [Concomitant]
  5. AMITRIPTYLINE HCL [Concomitant]
  6. COLCHICINE [Concomitant]
  7. LEVOTHYROXINE SODIUM [Concomitant]
  8. NEURONTIN [Concomitant]

REACTIONS (4)
  - CONDITION AGGRAVATED [None]
  - OEDEMA PERIPHERAL [None]
  - RAYNAUD'S PHENOMENON [None]
  - WEIGHT INCREASED [None]
